FAERS Safety Report 16050955 (Version 1)
Quarter: 2019Q1

REPORT INFORMATION
  Report Type: Spontaneous
  Country: US (occurrence: US)
  Receive Date: 20190308
  Receipt Date: 20190308
  Transmission Date: 20190418
  Serious: No
  Sender: FDA-Public Use
  Company Number: US-BAUSCH-BL-2019-006301

PATIENT
  Age: 65 Year
  Sex: Female
  Weight: 108.51 kg

DRUGS (1)
  1. LATANOPROST. [Suspect]
     Active Substance: LATANOPROST
     Indication: GLAUCOMA
     Dosage: EVERY EVENING
     Route: 047
     Dates: end: 20190215

REACTIONS (4)
  - Eye pruritus [Recovering/Resolving]
  - Product use complaint [Unknown]
  - Eye irritation [Not Recovered/Not Resolved]
  - Intraocular pressure increased [Recovering/Resolving]

NARRATIVE: CASE EVENT DATE: 2019
